FAERS Safety Report 17145225 (Version 1)
Quarter: 2019Q4

REPORT INFORMATION
  Report Type: Spontaneous
  Country: NL (occurrence: FR)
  Receive Date: 20191212
  Receipt Date: 20191212
  Transmission Date: 20200122
  Serious: Yes (Hospitalization, Other)
  Sender: FDA-Public Use
  Company Number: FR-FRESENIUS KABI-FK201913614

PATIENT
  Age: 62 Year
  Sex: Female
  Weight: 84 kg

DRUGS (7)
  1. BENDAMUSTINE HYDROCHLORIDE (MANUFACTURER UNKOWN) [Suspect]
     Active Substance: BENDAMUSTINE HYDROCHLORIDE
     Indication: HODGKIN^S DISEASE
     Dosage: 170 MG, UNK
     Route: 065
     Dates: start: 20170209, end: 20170303
  2. GEMCITABINE. [Suspect]
     Active Substance: GEMCITABINE
     Indication: HODGKIN^S DISEASE
     Dosage: 1850 MG, UNK
     Route: 042
     Dates: start: 20170324
  3. VINORELBINE [Suspect]
     Active Substance: VINORELBINE TARTRATE
     Indication: HODGKIN^S DISEASE
     Dosage: 37 MG, UNK
     Route: 065
     Dates: start: 20170324, end: 20170711
  4. NIVOLUMAB [Suspect]
     Active Substance: NIVOLUMAB
     Indication: PRODUCT USED FOR UNKNOWN INDICATION
     Route: 065
  5. BRENTUXIMAB VEDOTIN [Suspect]
     Active Substance: BRENTUXIMAB VEDOTIN
     Dosage: 135 MG, UNK
     Route: 042
     Dates: start: 20170331
  6. DOXORUBICIN [Suspect]
     Active Substance: DOXORUBICIN
     Indication: HODGKIN^S DISEASE
     Dosage: 28 MG, UNK
     Route: 065
     Dates: start: 20170324, end: 20170711
  7. BRENTUXIMAB VEDOTIN [Suspect]
     Active Substance: BRENTUXIMAB VEDOTIN
     Indication: HODGKIN^S DISEASE
     Dosage: 150 MG, UNK
     Route: 042
     Dates: start: 20170209, end: 20180213

REACTIONS (8)
  - Off label use [Unknown]
  - Fatigue [Recovered/Resolved]
  - Neutropenia [Unknown]
  - Pneumocystis jirovecii pneumonia [Recovered/Resolved]
  - Neuropathy peripheral [Recovered/Resolved]
  - General physical health deterioration [Recovered/Resolved]
  - Weight decreased [Unknown]
  - Toxic skin eruption [Recovered/Resolved]

NARRATIVE: CASE EVENT DATE: 20170303
